FAERS Safety Report 6329526-0 (Version None)
Quarter: 2009Q3

REPORT INFORMATION
  Report Type: 
  Country: None (occurrence: None)
  Receive Date: 20090826
  Receipt Date: 20090817
  Transmission Date: 20100115
  Serious: Yes (Hospitalization, Other)
  Sender: FDA-Public Use
  Company Number: US-ELI_LILLY_AND_COMPANY-US200905004115

PATIENT
  Sex: Female

DRUGS (17)
  1. FORTEO [Suspect]
     Dosage: 20 UG, DAILY (1/D)
     Dates: start: 20080520
  2. FORTEO [Suspect]
     Dosage: 20 UG, DAILY (1/D)
  3. FORTEO [Suspect]
     Dosage: 20 UG, DAILY (1/D)
  4. CALCIUM W/VITAMIN D NOS [Concomitant]
  5. TOPROL-XL [Concomitant]
  6. DILTIAZEM [Concomitant]
  7. ADVAIR HFA [Concomitant]
  8. ALLEGRA-D                          /01367401/ [Concomitant]
  9. SINGULAIR [Concomitant]
  10. LEVOTHYROXINE SODIUM [Concomitant]
  11. PROTONIX [Concomitant]
  12. FLEXERIL [Concomitant]
  13. ASPIRIN [Concomitant]
  14. TYLENOL (CAPLET) [Concomitant]
  15. VICODIN [Concomitant]
  16. OXYCODONE [Concomitant]
  17. NORCO [Concomitant]

REACTIONS (5)
  - BUNION OPERATION [None]
  - FLUSHING [None]
  - KNEE ARTHROPLASTY [None]
  - LIMB SALVAGE THERAPY [None]
  - POOR QUALITY SLEEP [None]
